FAERS Safety Report 25446964 (Version 2)
Quarter: 2025Q3

REPORT INFORMATION
  Report Type: Report from Study
  Country: US (occurrence: US)
  Receive Date: 20250617
  Receipt Date: 20250730
  Transmission Date: 20251021
  Serious: No
  Sender: MALLINCKRODT
  Company Number: US-MALLINCKRODT-MNK202503070

PATIENT
  Age: 52 Year
  Sex: Female
  Weight: 120 kg

DRUGS (2)
  1. CORTICOTROPIN [Suspect]
     Active Substance: CORTICOTROPIN
     Indication: Keratitis interstitial
     Dosage: 80 UNITS
     Route: 058
     Dates: start: 20250517
  2. PREDNISONE [Concomitant]
     Active Substance: PREDNISONE

REACTIONS (6)
  - Visual impairment [Not Recovered/Not Resolved]
  - Fear of injection [Not Recovered/Not Resolved]
  - Stress [Unknown]
  - Coagulopathy [Unknown]
  - Laboratory test abnormal [Unknown]
  - Inappropriate schedule of product administration [Unknown]

NARRATIVE: CASE EVENT DATE: 20250101
